FAERS Safety Report 9013976 (Version 2)
Quarter: 2013Q1

REPORT INFORMATION
  Report Type: Report from Study
  Country: US (occurrence: US)
  Receive Date: 20130115
  Receipt Date: 20130118
  Transmission Date: 20140127
  Serious: Yes (Death)
  Sender: FDA-Public Use
  Company Number: US-ROCHE-1179704

PATIENT
  Sex: Male

DRUGS (1)
  1. VALGANCICLOVIR [Suspect]
     Indication: TRANSPLANT
     Route: 042

REACTIONS (1)
  - Lymphoma [Fatal]
